FAERS Safety Report 10378569 (Version 1)
Quarter: 2014Q3

REPORT INFORMATION
  Report Type: Spontaneous
  Country: US (occurrence: None)
  Receive Date: 20140811
  Receipt Date: 20140811
  Transmission Date: 20150326
  Serious: Yes (Hospitalization)
  Sender: FDA-Public Use
  Company Number: None

PATIENT
  Age: 69 Year
  Sex: Female
  Weight: 52.16 kg

DRUGS (1)
  1. HALCION [Suspect]
     Active Substance: TRIAZOLAM
     Indication: SLEEP DISORDER THERAPY
     Dates: start: 19980806, end: 19980806

REACTIONS (3)
  - Immune system disorder [None]
  - Mental disorder [None]
  - Ovarian cancer metastatic [None]

NARRATIVE: CASE EVENT DATE: 19980801
